FAERS Safety Report 8419218-6 (Version None)
Quarter: 2012Q2

REPORT INFORMATION
  Report Type: 
  Country: None (occurrence: None)
  Receive Date: 20120601
  Receipt Date: 20120516
  Transmission Date: 20120825
  Serious: Yes (Hospitalization)
  Sender: FDA-Public Use
  Company Number: 2012-2049

PATIENT
  Age: 38 Year
  Sex: Male
  Weight: 74 kg

DRUGS (5)
  1. INCRELEX [Suspect]
     Indication: OFF LABEL USE
     Dosage: 6 MG (3 MG, 2 IN 1 D), SUBCUTANEOUS
     Route: 058
     Dates: start: 20120302
  2. INCRELEX [Suspect]
     Indication: HIV INFECTION
     Dosage: 6 MG (3 MG, 2 IN 1 D), SUBCUTANEOUS
     Route: 058
     Dates: start: 20120302
  3. TENOFOVIR (TENOFOVIR) [Concomitant]
  4. EMTRICITABINE [Concomitant]
  5. EFAVIRENZ [Concomitant]

REACTIONS (1)
  - LIMB TRAUMATIC AMPUTATION [None]
